FAERS Safety Report 11128205 (Version 2)
Quarter: 2015Q3

REPORT INFORMATION
  Report Type: Spontaneous
  Country: IT (occurrence: IT)
  Receive Date: 20150521
  Receipt Date: 20150708
  Transmission Date: 20151125
  Serious: Yes (Other)
  Sender: FDA-Public Use
  Company Number: IT-BAXTER-2015BAX026430

PATIENT
  Age: 27 Year
  Sex: Female

DRUGS (1)
  1. METRONIDAZOLO BAXTER 0,5% [Suspect]
     Active Substance: METRONIDAZOLE
     Indication: ENTEROCOLITIS
     Route: 042
     Dates: start: 20150508, end: 20150509

REACTIONS (2)
  - Dyspnoea [Recovered/Resolved]
  - Cough [Recovered/Resolved]

NARRATIVE: CASE EVENT DATE: 20150509
